FAERS Safety Report 7118262-9 (Version None)
Quarter: 2010Q4

REPORT INFORMATION
  Report Type: 
  Country: None (occurrence: None)
  Receive Date: 20101118
  Receipt Date: 20101118
  Transmission Date: 20110411
  Serious: Yes (Other)
  Sender: FDA-Public Use
  Company Number: None

PATIENT
  Age: 66 Year
  Sex: Male

DRUGS (4)
  1. REVLIMID [Suspect]
     Indication: MULTIPLE MYELOMA
     Dosage: REVLIMID 25MG DAILY X 21DAYS ORAL
     Route: 048
     Dates: start: 20101015
  2. DEXAMETHASONE [Concomitant]
  3. SIMVASTATIN [Concomitant]
  4. TERAZOSIN HCL [Concomitant]

REACTIONS (1)
  - RASH GENERALISED [None]
